FAERS Safety Report 22148758 (Version 1)
Quarter: 2023Q1

REPORT INFORMATION
  Report Type: Spontaneous
  Country: US (occurrence: US)
  Receive Date: 20230328
  Receipt Date: 20230328
  Transmission Date: 20230417
  Serious: Yes (Hospitalization)
  Sender: FDA-Public Use
  Company Number: US-CTI BIOPHARMA-2023US03411

PATIENT

DRUGS (7)
  1. VONJO [Suspect]
     Active Substance: PACRITINIB
     Indication: Myelofibrosis
     Dosage: 200 MG, BID
     Dates: start: 20220429
  2. VONJO [Suspect]
     Active Substance: PACRITINIB
     Dosage: 100 MG, BID
     Route: 048
     Dates: start: 20221006
  3. VONJO [Suspect]
     Active Substance: PACRITINIB
     Dosage: 100 MG, BID
     Route: 048
     Dates: start: 20220710
  4. VONJO [Suspect]
     Active Substance: PACRITINIB
     Dosage: 100 MG
     Route: 048
     Dates: start: 20220802
  5. VONJO [Suspect]
     Active Substance: PACRITINIB
     Dosage: 100 MG
     Route: 048
     Dates: start: 20220829
  6. VITAMINS NOS [Concomitant]
     Active Substance: VITAMINS
  7. ASPIRIN [Concomitant]
     Active Substance: ASPIRIN

REACTIONS (10)
  - Diarrhoea [Unknown]
  - Tissue injury [Unknown]
  - Product quality issue [Unknown]
  - Flatulence [Unknown]
  - Abdominal pain upper [Unknown]
  - Abnormal faeces [Unknown]
  - Stomatitis [Unknown]
  - Rash macular [Unknown]
  - Haemoglobin decreased [Unknown]
  - Pruritus [Unknown]

NARRATIVE: CASE EVENT DATE: 20220701
